FAERS Safety Report 13084605 (Version 2)
Quarter: 2017Q1

REPORT INFORMATION
  Report Type: Spontaneous
  Country: FR (occurrence: FR)
  Receive Date: 20170104
  Receipt Date: 20170109
  Transmission Date: 20170428
  Serious: Yes (Death, Hospitalization)
  Sender: FDA-Public Use
  Company Number: FR-PFIZER INC-2017000070

PATIENT
  Age: 87 Year
  Sex: Female

DRUGS (1)
  1. CORDARONE [Suspect]
     Active Substance: AMIODARONE HYDROCHLORIDE
     Indication: ATRIAL FIBRILLATION
     Dosage: 200 MG, DAILY
     Route: 048
     Dates: end: 20161204

REACTIONS (5)
  - Hyponatraemia [Unknown]
  - Bronchitis [Fatal]
  - Pulmonary fibrosis [Fatal]
  - Cardiac failure [Fatal]
  - Iron deficiency anaemia [Unknown]

NARRATIVE: CASE EVENT DATE: 201612
